FAERS Safety Report 7805157-8 (Version None)
Quarter: 2011Q4

REPORT INFORMATION
  Report Type: 
  Country: None (occurrence: None)
  Receive Date: 20111010
  Receipt Date: 20110927
  Transmission Date: 20120403
  Serious: Yes (Hospitalization)
  Sender: FDA-Public Use
  Company Number: ES-NOVOPROD-336118

PATIENT

DRUGS (2)
  1. REPAGLINIDE [Suspect]
     Dosage: 2 MG, QD
  2. REPAGLINIDE [Suspect]
     Indication: TYPE 2 DIABETES MELLITUS
     Dosage: 1 MG, QD

REACTIONS (1)
  - HEPATITIS CHOLESTATIC [None]
